FAERS Safety Report 9845650 (Version 3)
Quarter: 2014Q1

REPORT INFORMATION
  Report Type: Spontaneous
  Country: DE (occurrence: DE)
  Receive Date: 20140127
  Receipt Date: 20140331
  Transmission Date: 20141002
  Serious: Yes (Hospitalization, Other)
  Sender: FDA-Public Use
  Company Number: DE-JNJFOC-20131210222

PATIENT
  Age: 67 Year
  Sex: Male
  Weight: 119 kg

DRUGS (7)
  1. ZYTIGA [Suspect]
     Indication: PROSTATE CANCER
     Route: 048
     Dates: start: 20130121, end: 20131202
  2. IBUPROFEN [Concomitant]
     Indication: PRODUCT USED FOR UNKNOWN INDICATION
     Route: 065
  3. PREDNISOLONE [Concomitant]
     Indication: PRODUCT USED FOR UNKNOWN INDICATION
     Route: 065
  4. METOPROLOL [Concomitant]
     Indication: HYPERTENSION
     Dosage: 0.5 TABLET/DAY
     Route: 065
  5. RAMIPRIL [Concomitant]
     Indication: HYPERTENSION
     Route: 065
  6. COTAREG [Concomitant]
     Indication: HYPERTENSION
     Dosage: 80/12.5, 0.5 TABLETS/DAY
     Route: 065
  7. ASS [Concomitant]
     Indication: HYPERTENSION
     Dosage: 100
     Route: 065

REACTIONS (2)
  - Neoplasm [Not Recovered/Not Resolved]
  - Hypokalaemia [Recovered/Resolved]
